FAERS Safety Report 25318942 (Version 2)
Quarter: 2025Q4

REPORT INFORMATION
  Report Type: Spontaneous
  Country: EU (occurrence: EU)
  Receive Date: 20250515
  Receipt Date: 20251031
  Transmission Date: 20260118
  Serious: Yes (Death, Hospitalization)
  Sender: TEVA
  Company Number: None

PATIENT
  Age: 1 Year
  Sex: Female
  Weight: 10 kg

DRUGS (2)
  1. DOXORUBICIN [Suspect]
     Active Substance: DOXORUBICIN
     Indication: Acute myeloid leukaemia
     Dosage: DOXO: 22.00 MG OVER 60 MINUTES.?FROM MARCH 28, 2025 TO MARCH 30, 2025 (FOR A TOTAL OF 3 DAYS)
     Route: 042
     Dates: start: 20250328, end: 20250330
  2. CYTARABINE [Suspect]
     Active Substance: CYTARABINE
     Indication: Acute myeloid leukaemia
     Dosage: CYTARABINE: 89 MG IV OVER 1440 MINUTES?FROM MARCH 28, 2025 TO APRIL 3, 2025 FOR A TOTAL OF 7 DAYS
     Route: 042
     Dates: start: 20250328, end: 20250403

REACTIONS (5)
  - Pancytopenia [Fatal]
  - Hypernatraemia [Fatal]
  - Pyrexia [Unknown]
  - Electrolyte imbalance [Fatal]
  - Septic shock [Fatal]

NARRATIVE: CASE EVENT DATE: 20250330
